FAERS Safety Report 7459849-3 (Version None)
Quarter: 2011Q2

REPORT INFORMATION
  Report Type: 
  Country: None (occurrence: None)
  Receive Date: 20110505
  Receipt Date: 20110422
  Transmission Date: 20111010
  Serious: Yes (Disabling, Other)
  Sender: FDA-Public Use
  Company Number: US-ELI_LILLY_AND_COMPANY-US201104006843

PATIENT
  Sex: Female

DRUGS (5)
  1. CYMBALTA [Suspect]
     Indication: FIBROMYALGIA
     Dosage: 60 MG, QD
     Route: 065
     Dates: end: 20100301
  2. BACLOFEN [Concomitant]
     Dosage: UNK, UNKNOWN
     Route: 065
  3. TRAZODONE HCL [Concomitant]
     Dosage: UNK, UNKNOWN
     Route: 065
  4. NADOLOL [Concomitant]
     Dosage: UNK, UNKNOWN
     Route: 065
  5. PAXIL [Concomitant]
     Dosage: UNK, UNKNOWN
     Route: 065

REACTIONS (10)
  - CEREBROVASCULAR ACCIDENT [None]
  - BLINDNESS [None]
  - WEIGHT DECREASED [None]
  - TREMOR [None]
  - HYPOAESTHESIA [None]
  - DECREASED APPETITE [None]
  - AMNESIA [None]
  - MIGRAINE [None]
  - MALAISE [None]
  - SPEECH DISORDER [None]
